FAERS Safety Report 9187553 (Version 2)
Quarter: 2013Q2

REPORT INFORMATION
  Report Type: Spontaneous
  Country: US (occurrence: US)
  Receive Date: 20130325
  Receipt Date: 20130506
  Transmission Date: 20140414
  Serious: No
  Sender: FDA-Public Use
  Company Number: US-PFIZER INC-2013092056

PATIENT
  Age: 82 Year
  Sex: Female
  Weight: 36 kg

DRUGS (2)
  1. PIROXICAM [Suspect]
     Indication: PAIN IN EXTREMITY
     Dosage: 1 DF, 1X/DAY
     Route: 048
  2. ALEVE [Concomitant]
     Indication: PAIN
     Dosage: 220 MG, 2X/DAY

REACTIONS (6)
  - Arthritis [Unknown]
  - Weight decreased [Unknown]
  - Depression [Unknown]
  - Abdominal pain upper [Unknown]
  - Malaise [Unknown]
  - Hypoaesthesia [Unknown]
